FAERS Safety Report 5663764-5 (Version None)
Quarter: 2008Q1

REPORT INFORMATION
  Report Type: 
  Country: None (occurrence: None)
  Receive Date: 20080311
  Receipt Date: 20080303
  Transmission Date: 20080703
  Serious: Yes (Hospitalization)
  Sender: FDA-Public Use
  Company Number: 16197

PATIENT
  Age: 69 Year
  Sex: Male
  Weight: 68.4932 kg

DRUGS (19)
  1. PENTOSTATIN [Suspect]
     Indication: CHRONIC LYMPHOCYTIC LEUKAEMIA
     Dosage: 7.24 MG Q3W IV
     Route: 042
     Dates: start: 20070123
  2. CYTOXAN [Suspect]
     Indication: CHRONIC LYMPHOCYTIC LEUKAEMIA
     Dosage: 108 MG Q3W IV
     Route: 042
     Dates: start: 20070123
  3. COMPAZINE /00013302/ [Concomitant]
  4. TOPROL-XL [Concomitant]
  5. RITUXAN [Suspect]
     Indication: CHRONIC LYMPHOCYTIC LEUKAEMIA
     Dosage: 673 MG Q3W IV
     Route: 042
     Dates: start: 20070130
  6. LIPITOR /01326101/ [Concomitant]
  7. PRILOSEC [Concomitant]
  8. ASPIRIN [Concomitant]
  9. NIACIN [Concomitant]
  10. FEOSOL [Concomitant]
  11. CITRACAL [Concomitant]
  12. CENTRUM SILVER MVI [Concomitant]
  13. FISH OIL CAPS [Concomitant]
  14. ACYCLOVIR [Concomitant]
  15. ALOPURINOL [Concomitant]
  16. BACTRIM DS [Concomitant]
  17. CIPRO /00697201/ [Concomitant]
  18. DAPSONE [Concomitant]
  19. ARANESP [Concomitant]

REACTIONS (3)
  - ANAEMIA [None]
  - ANAPHYLACTIC REACTION [None]
  - TRANSFUSION REACTION [None]
